FAERS Safety Report 8463066-8 (Version None)
Quarter: 2012Q2

REPORT INFORMATION
  Report Type: 
  Country: None (occurrence: None)
  Receive Date: 20120625
  Receipt Date: 20120619
  Transmission Date: 20120825
  Serious: Yes (Other)
  Sender: FDA-Public Use
  Company Number: US-PFIZER INC-2012147716

PATIENT
  Sex: Male

DRUGS (30)
  1. PROAIR HFA [Concomitant]
     Indication: LUNG DISORDER
     Dosage: 108 (90 BASE) MCG/ACT, 2 PUFFS AS NEEDED EVERY 4 HRS
     Route: 055
  2. RANITIDINE HYDROCHLORIDE [Concomitant]
     Indication: GASTROOESOPHAGEAL REFLUX DISEASE
     Dosage: 150 MG, BEDTIME
     Route: 048
  3. PREDNISONE [Concomitant]
     Dosage: 20 MG, 1X/DAY
     Route: 048
  4. DOSS [Concomitant]
     Dosage: 250 MG, 1-3 TABLET PO BID
     Route: 048
  5. DIVALPROEX SODIUM [Concomitant]
     Dosage: 500 MG, 2X/DAY (250MG, 2 TABLETS ORALLY TWICE A DAY)
     Route: 048
  6. ADVAIR DISKUS 100/50 [Concomitant]
     Indication: ASTHMA
     Dosage: 500-50 MCG/DOSE (1 PUFF INHALATION EVERY 12 HRS )
     Route: 055
  7. MIRAPEX [Concomitant]
     Dosage: 0.5 MG, AS NEEDED (PRN)
     Route: 048
  8. IRON [Concomitant]
     Dosage: UNK, 1X/DAY
     Route: 048
  9. ADVAIR DISKUS 100/50 [Concomitant]
     Indication: CHRONIC OBSTRUCTIVE PULMONARY DISEASE
  10. MESTINON [Concomitant]
     Dosage: 180 MG, BEDTIME
     Route: 048
  11. MORPHINE SULFATE [Concomitant]
     Indication: PAIN
     Dosage: 30 MG, 5 A DAY (2 AM, 1 MID DAY, 2 HR )
     Route: 048
  12. LIPITOR [Suspect]
     Indication: BLOOD CHOLESTEROL
     Dosage: 20 MG, 1X/DAY
     Route: 048
  13. ZOLOFT [Suspect]
     Indication: MOOD ALTERED
     Dosage: 100 MG, 1X/DAY
     Route: 048
  14. VITAMIN D [Concomitant]
     Dosage: 800 IU, 1X/DAY
     Route: 048
  15. TOPICORT [Concomitant]
     Dosage: UNK, AS NEEDED (PRN)
     Route: 062
  16. GLUCOSAMINE W/CHONDROITIN SULFATES [Concomitant]
     Dosage: 250-200 MG 3X/DAY (2 TABLETS AFTER MEALS )
     Route: 048
  17. METOPROLOL TARTRATE [Concomitant]
     Dosage: 25 MG, 1/2 TAB 2X/DAY
     Route: 048
  18. WELLBUTRIN SR [Concomitant]
     Indication: AFFECTIVE DISORDER
     Dosage: 150 MG, 2X/DAY (MORNING AND MID AFTERNOON )
     Route: 048
  19. ONDANSETRON HYDROCHLORIDE [Concomitant]
     Indication: VOMITING
     Dosage: 4 MG, 3X/DAY
     Route: 048
  20. FOLIC ACID [Concomitant]
     Dosage: 2 MG, 1X/DAY (1MG 2CAPS DAILY)
     Route: 048
  21. METHOTREXATE [Concomitant]
     Dosage: 2.5MG, 8TABLETS ORALLY ONE TIME A WEEK
     Route: 048
  22. SAVELLA [Concomitant]
     Indication: MYALGIA
     Dosage: 100 MG, 2X/DAY (1/2-1 TABLET )
     Route: 048
  23. NITROSTAT [Suspect]
     Indication: CHEST PAIN
     Dosage: 0.4 MG, AS NEEDED
     Route: 060
  24. OMEPRAZOLE [Concomitant]
     Indication: GASTROOESOPHAGEAL REFLUX DISEASE
     Dosage: 40 MG, IN THE MORNING BEFORE BREAKFAST
     Route: 048
  25. LOTRISONE [Concomitant]
     Indication: RASH
     Dosage: 1-0.05 % 2X/DAY
  26. VITAMIN B-12 [Concomitant]
     Dosage: 1000 UG, 1X/DAY
     Route: 048
  27. FISH OIL [Concomitant]
     Dosage: 500 MG, AS DIRECTED
     Route: 048
  28. PYRIDOSTIGMINE BROMIDE [Concomitant]
     Dosage: 60 MG, 2 TABS 9X A DAY
     Route: 048
  29. ASPIR-81 [Concomitant]
     Dosage: 81 MG, 1X/DAY
     Route: 048
  30. POTASSIUM [Concomitant]
     Dosage: 10 MEQ, 2X/DAY
     Route: 048

REACTIONS (15)
  - PAIN [None]
  - HYPERTENSION [None]
  - TINEA CRURIS [None]
  - MYELOPATHY [None]
  - PSORIATIC ARTHROPATHY [None]
  - METABOLIC SYNDROME [None]
  - MYASTHENIC SYNDROME [None]
  - GASTROOESOPHAGEAL REFLUX DISEASE [None]
  - BRONCHOSPASM [None]
  - FIBROMYALGIA [None]
  - RESTLESS LEGS SYNDROME [None]
  - ARTERIOSCLEROSIS CORONARY ARTERY [None]
  - DEPRESSION [None]
  - ARTHRITIS [None]
  - HYPERCHOLESTEROLAEMIA [None]
